FAERS Safety Report 19878109 (Version 2)
Quarter: 2021Q3

REPORT INFORMATION
  Report Type: Report from Study
  Country: PH (occurrence: PH)
  Receive Date: 20210923
  Receipt Date: 20210930
  Transmission Date: 20211014
  Serious: Yes (Death)
  Sender: FDA-Public Use
  Company Number: NVSC2021PH215744

PATIENT
  Age: 39 Year
  Sex: Female

DRUGS (1)
  1. KRYXANA [Suspect]
     Active Substance: RIBOCICLIB
     Indication: PRODUCT USED FOR UNKNOWN INDICATION
     Dosage: 3 DF (IN THE EVENING)
     Route: 065

REACTIONS (1)
  - Cardiac arrest [Fatal]

NARRATIVE: CASE EVENT DATE: 20210514
